FAERS Safety Report 17632972 (Version 1)
Quarter: 2020Q2

REPORT INFORMATION
  Report Type: Spontaneous
  Country: US (occurrence: US)
  Receive Date: 20200406
  Receipt Date: 20200406
  Transmission Date: 20200713
  Serious: No
  Sender: FDA-Public Use
  Company Number: US-SA-2020SA084230

PATIENT
  Sex: Female
  Weight: 77 kg

DRUGS (13)
  1. PLAVIX [Suspect]
     Active Substance: CLOPIDOGREL BISULFATE
     Dosage: 75 MG, QD
     Route: 048
     Dates: start: 20190115
  2. PRIMIDONE. [Concomitant]
     Active Substance: PRIMIDONE
     Dosage: 50 MG
  3. VITAMIN D3 [Concomitant]
     Active Substance: CHOLECALCIFEROL
  4. CITALOPRAM [Concomitant]
     Active Substance: CITALOPRAM HYDROBROMIDE
     Dosage: 20 MG
  5. PANTOPRAZOLE [Concomitant]
     Active Substance: PANTOPRAZOLE
     Dosage: 40 MG
  6. BABY ASPIRIN [Concomitant]
     Active Substance: ASPIRIN
     Dosage: 81 MG
  7. BIOTIN [Concomitant]
     Active Substance: BIOTIN
     Dosage: 5000 MG
  8. LOVASTATIN. [Concomitant]
     Active Substance: LOVASTATIN
     Dosage: 20 MG
  9. TYLENOL [Concomitant]
     Active Substance: ACETAMINOPHEN
     Dosage: 500 MG, BID
  10. SOLIFENACIN [Concomitant]
     Active Substance: SOLIFENACIN
     Dosage: 10 MG, HS
  11. DOXYCYCLINE. [Concomitant]
     Active Substance: DOXYCYCLINE
  12. MIDODRINE [Concomitant]
     Active Substance: MIDODRINE
     Dosage: 5 MG
  13. IRON [Concomitant]
     Active Substance: IRON
     Dosage: UNK UNK, BID

REACTIONS (2)
  - Contusion [Not Recovered/Not Resolved]
  - Skin discolouration [Unknown]
